FAERS Safety Report 23808941 (Version 1)
Quarter: 2024Q2

REPORT INFORMATION
  Report Type: Report from Study
  Country: CL (occurrence: None)
  Receive Date: 20240502
  Receipt Date: 20240502
  Transmission Date: 20240716
  Serious: Yes (Other)
  Sender: FDA-Public Use
  Company Number: 2024A099509

PATIENT
  Age: 2073 Day
  Sex: Male

DRUGS (3)
  1. BUDESONIDE\FORMOTEROL FUMARATE DIHYDRATE [Suspect]
     Active Substance: BUDESONIDE\FORMOTEROL FUMARATE DIHYDRATE
     Indication: Asthma
     Dosage: 160 UG/INHAL FOUR TIMES A DAY
     Route: 055
     Dates: start: 20240422
  2. PREDNISONE [Concomitant]
     Active Substance: PREDNISONE
  3. ALBUTEROL [Concomitant]
     Active Substance: ALBUTEROL
     Dates: end: 20240424

REACTIONS (1)
  - Feeling abnormal [Not Recovered/Not Resolved]

NARRATIVE: CASE EVENT DATE: 20240424
